FAERS Safety Report 5746175-3 (Version None)
Quarter: 2008Q2

REPORT INFORMATION
  Report Type: 
  Country: None (occurrence: None)
  Receive Date: 20080520
  Receipt Date: 20080516
  Transmission Date: 20081010
  Serious: Yes (Hospitalization)
  Sender: FDA-Public Use
  Company Number: 2007SP025005

PATIENT
  Age: 46 Year
  Sex: Male

DRUGS (4)
  1. CELESTONE [Suspect]
     Indication: SINUSITIS
     Dosage: PO
     Route: 048
     Dates: start: 20071105, end: 20071112
  2. CEFPODOXIME PROXETIL [Suspect]
     Indication: SINUSITIS
     Dosage: PO
     Route: 048
     Dates: start: 20071105, end: 20071112
  3. ACETYLCYSTEINE [Suspect]
     Indication: SINUSITIS
     Dosage: PO
     Route: 048
     Dates: start: 20071105, end: 20071112
  4. LORAZEPAM [Concomitant]

REACTIONS (6)
  - ERYTHEMA [None]
  - GENERAL PHYSICAL HEALTH DETERIORATION [None]
  - PRURITUS [None]
  - PYREXIA [None]
  - RASH MACULO-PAPULAR [None]
  - SKIN PLAQUE [None]
